FAERS Safety Report 14270039 (Version 1)
Quarter: 2017Q4

REPORT INFORMATION
  Report Type: Spontaneous
  Country: IT (occurrence: IT)
  Receive Date: 20171211
  Receipt Date: 20171211
  Transmission Date: 20180321
  Serious: Yes (Hospitalization)
  Sender: FDA-Public Use
  Company Number: IT-OTSUKA-2017_010684

PATIENT
  Age: 45 Year
  Sex: Female
  Weight: 66 kg

DRUGS (2)
  1. ABILIFY [Suspect]
     Active Substance: ARIPIPRAZOLE
     Indication: BIPOLAR DISORDER
     Dosage: 15 MG, QD
     Route: 048
     Dates: start: 20170419, end: 20170501
  2. CARBOLITHIUM [Suspect]
     Active Substance: LITHIUM CARBONATE
     Indication: BIPOLAR DISORDER
     Dosage: 1200 MG, QD
     Route: 065
     Dates: start: 20170426, end: 20170501

REACTIONS (1)
  - Extrapyramidal disorder [Not Recovered/Not Resolved]

NARRATIVE: CASE EVENT DATE: 20170501
